FAERS Safety Report 22017840 (Version 2)
Quarter: 2023Q2

REPORT INFORMATION
  Report Type: Report from Study
  Country: CA (occurrence: CA)
  Receive Date: 20230221
  Receipt Date: 20230417
  Transmission Date: 20230721
  Serious: Yes (Other)
  Sender: FDA-Public Use
  Company Number: CA-TAKEDA-2021TUS032822

PATIENT
  Age: 62 Year
  Sex: Female

DRUGS (4)
  1. VEDOLIZUMAB [Suspect]
     Active Substance: VEDOLIZUMAB
     Indication: Crohn^s disease
     Dosage: 300 MILLIGRAM
     Route: 042
     Dates: start: 20210506
  2. VEDOLIZUMAB [Suspect]
     Active Substance: VEDOLIZUMAB
     Dosage: 300 MILLIGRAM
     Route: 042
  3. VEDOLIZUMAB [Suspect]
     Active Substance: VEDOLIZUMAB
     Indication: Crohn^s disease
     Dosage: UNK UNK, Q2WEEKS
     Route: 058
     Dates: start: 20220307
  4. VEDOLIZUMAB [Suspect]
     Active Substance: VEDOLIZUMAB
     Dosage: UNK UNK, 1/WEEK
     Route: 058
     Dates: start: 202207

REACTIONS (10)
  - Crohn^s disease [Not Recovered/Not Resolved]
  - Loose tooth [Not Recovered/Not Resolved]
  - Headache [Recovered/Resolved]
  - Gingival recession [Unknown]
  - Diarrhoea [Unknown]
  - Periorbital swelling [Unknown]
  - Arthralgia [Unknown]
  - Abdominal tenderness [Unknown]
  - Impaired quality of life [Unknown]
  - Therapeutic reaction time decreased [Unknown]
